FAERS Safety Report 5216794-1 (Version None)
Quarter: 2007Q1

REPORT INFORMATION
  Report Type: 
  Country: None (occurrence: None)
  Receive Date: 20070118
  Receipt Date: 20070105
  Transmission Date: 20070707
  Serious: Yes (Other)
  Sender: FDA-Public Use
  Company Number: SP-2007-003402

PATIENT
  Age: 64 Year
  Sex: Male
  Weight: 130 kg

DRUGS (4)
  1. OLMESARTAN MEDOXOMIL [Suspect]
     Indication: HYPERTENSION
     Dosage: 20 MG QD PO
     Route: 048
     Dates: start: 20060906, end: 20060906
  2. AMLODIPINE [Concomitant]
  3. ASPIRIN [Concomitant]
  4. DOXAZOSIN MESYLATE [Concomitant]

REACTIONS (1)
  - PHARYNGEAL OEDEMA [None]
